FAERS Safety Report 18104140 (Version 1)
Quarter: 2020Q3

REPORT INFORMATION
  Report Type: Spontaneous
  Country: US (occurrence: US)
  Receive Date: 20200802
  Receipt Date: 20200802
  Transmission Date: 20201103
  Serious: Yes (Disabling)
  Sender: FDA-Public Use
  Company Number: None

PATIENT
  Age: 80 Year
  Sex: Male
  Weight: 92.25 kg

DRUGS (7)
  1. VITAMINS [Concomitant]
     Active Substance: VITAMINS
  2. NIASPAN [Concomitant]
     Active Substance: NIACIN
  3. REPATHA [Suspect]
     Active Substance: EVOLOCUMAB
     Indication: HYPERLIPIDAEMIA
     Dosage: ?          OTHER FREQUENCY:2 WEEKS;?
     Route: 030
     Dates: start: 20200415, end: 20200720
  4. METAPROLOL [Concomitant]
     Active Substance: METOPROLOL
  5. CALCIUM [Concomitant]
     Active Substance: CALCIUM
  6. MYCARDIS [Concomitant]
  7. ASPIRIN. [Concomitant]
     Active Substance: ASPIRIN

REACTIONS (2)
  - Fatigue [None]
  - Back pain [None]

NARRATIVE: CASE EVENT DATE: 20200701
